FAERS Safety Report 8866230 (Version 2)
Quarter: 2012Q4

REPORT INFORMATION
  Report Type: 
  Country: SE (occurrence: SE)
  Receive Date: 20121025
  Receipt Date: 20121219
  Transmission Date: 20130627
  Serious: Yes (Death, Other)
  Sender: FDA-Public Use
  Company Number: PHHY2012SE087707

PATIENT
  Age: 15 Year
  Sex: Male

DRUGS (6)
  1. SIMULECT [Suspect]
     Indication: HEART TRANSPLANT
     Dosage: 20 mg, UNK
     Route: 042
     Dates: start: 20120829
  2. SIMULECT [Suspect]
     Dosage: 20 mg, UNK
     Route: 042
     Dates: start: 20120902
  3. TACROLIMUS ACCORD [Concomitant]
  4. CEFUROXIME [Concomitant]
  5. CELLCEPT [Concomitant]
  6. GAMMA GLOBULIN [Concomitant]
     Dosage: 30 mg, UNK

REACTIONS (17)
  - Cardiac arrest [Fatal]
  - Atrioventricular block [Fatal]
  - Myocardial infarction [Fatal]
  - Cerebral infarction [Fatal]
  - Splenic infarction [Fatal]
  - Renal infarct [Fatal]
  - Arterial thrombosis [Fatal]
  - Venous thrombosis [Fatal]
  - Circulatory collapse [Fatal]
  - Cardiac failure [Fatal]
  - Cerebral artery embolism [Fatal]
  - Coagulopathy [Fatal]
  - Embolism [Unknown]
  - Complications of transplanted heart [Unknown]
  - Cardiac disorder [Recovered/Resolved]
  - Blood lactic acid increased [Unknown]
  - Drug ineffective [Unknown]
